FAERS Safety Report 12276240 (Version 1)
Quarter: 2016Q2

REPORT INFORMATION
  Report Type: Spontaneous
  Country: US (occurrence: US)
  Receive Date: 20160418
  Receipt Date: 20160418
  Transmission Date: 20160815
  Serious: No
  Sender: FDA-Public Use
  Company Number: US-WATSON-2015-24596

PATIENT
  Age: 68 Year
  Sex: Female

DRUGS (2)
  1. LEVALBUTEROL HYDROCHLORIDE (WATSON LABORATORIES) [Suspect]
     Active Substance: LEVALBUTEROL HYDROCHLORIDE
     Indication: ASTHMA
  2. LEVALBUTEROL HYDROCHLORIDE (WATSON LABORATORIES) [Suspect]
     Active Substance: LEVALBUTEROL HYDROCHLORIDE
     Indication: BRONCHIECTASIS
     Dosage: 1.25 MG, BID
     Route: 055
     Dates: start: 2014

REACTIONS (2)
  - Drug dose omission [Not Recovered/Not Resolved]
  - Arthralgia [Not Recovered/Not Resolved]

NARRATIVE: CASE EVENT DATE: 201505
